FAERS Safety Report 11288805 (Version 1)
Quarter: 2015Q3

REPORT INFORMATION
  Report Type: Spontaneous
  Country: US (occurrence: US)
  Receive Date: 20150721
  Receipt Date: 20150721
  Transmission Date: 20151125
  Serious: No
  Sender: FDA-Public Use
  Company Number: US-UNITED THERAPEUTICS-UNT-2014-012062

PATIENT
  Sex: Female
  Weight: 96.15 kg

DRUGS (3)
  1. REMODULIN [Suspect]
     Active Substance: TREPROSTINIL
     Indication: PULMONARY ARTERIAL HYPERTENSION
     Dosage: 0.013 ?G/KG/MIN, CONTINUING
     Route: 041
     Dates: start: 20141206
  2. TYVASO [Suspect]
     Active Substance: TREPROSTINIL
     Indication: PULMONARY ARTERIAL HYPERTENSION
     Dosage: 36-54 MICROGRAMS, QID
     Dates: start: 20130912, end: 20141205
  3. ADCIRCA [Concomitant]
     Active Substance: TADALAFIL
     Indication: PRODUCT USED FOR UNKNOWN INDICATION

REACTIONS (8)
  - Drug intolerance [Unknown]
  - Diarrhoea [Unknown]
  - Injection site pain [Unknown]
  - Injection site erythema [Unknown]
  - Dermatitis contact [Unknown]
  - Skin irritation [Unknown]
  - Adverse event [Unknown]
  - Injection site reaction [Unknown]

NARRATIVE: CASE EVENT DATE: 2014
